FAERS Safety Report 6156544-8 (Version None)
Quarter: 2009Q2

REPORT INFORMATION
  Report Type: 
  Country: None (occurrence: None)
  Receive Date: 20090413
  Receipt Date: 20090211
  Transmission Date: 20091009
  Serious: Yes (Death)
  Sender: FDA-Public Use
  Company Number: OPER20090030

PATIENT
  Age: 32 Year
  Sex: Male

DRUGS (4)
  1. OPANA ER [Suspect]
     Dosage: 40 MG, 2 TAB BID, PER ORAL
     Route: 048
     Dates: start: 20081001
  2. LORAZEPAM [Concomitant]
  3. CLONAZEPAM [Concomitant]
  4. BACLOFEN [Concomitant]

REACTIONS (2)
  - DRUG EFFECT DECREASED [None]
  - SEDATION [None]
